FAERS Safety Report 23358246 (Version 1)
Quarter: 2023Q4

REPORT INFORMATION
  Report Type: Spontaneous
  Country: US (occurrence: None)
  Receive Date: 20231231
  Receipt Date: 20231231
  Transmission Date: 20240109
  Serious: Yes (Hospitalization)
  Sender: FDA-Public Use
  Company Number: None

PATIENT
  Sex: Female

DRUGS (17)
  1. BENLYSTA [Suspect]
     Active Substance: BELIMUMAB
     Indication: Systemic lupus erythematosus
     Route: 058
     Dates: start: 20230425
  2. ACTHAR INJ [Concomitant]
  3. CLOBETASOL OIN 0.05% [Concomitant]
  4. FOLIC ACID TAB 1000MCG [Concomitant]
  5. FOLIC ACID TAB 1MG [Concomitant]
  6. LEFLUNOMIDE TAB 10MG [Concomitant]
  7. LISINOPRIL TAB 10MG [Concomitant]
  8. LISINOPRIL TAB 2.5MG [Concomitant]
  9. LORATADINE TAB 10MG [Concomitant]
  10. NITRO-BID OIN 2% [Concomitant]
  11. PLAQUENIL TAB 200MG [Concomitant]
  12. RESTASIS EMU 0.05% OP [Concomitant]
  13. SUMATRIPTAN TAB 25MG [Concomitant]
  14. TIMOLOL MAL SOL 0.5% [Concomitant]
  15. TRIAMCINOLON OIN 0.025% [Concomitant]
  16. TYLENOL TAB 500MG [Concomitant]
  17. VITAMIN D CAP 1.25MG [Concomitant]

REACTIONS (2)
  - Hospitalisation [None]
  - Therapy interrupted [None]
